FAERS Safety Report 8290854-3 (Version None)
Quarter: 2012Q2

REPORT INFORMATION
  Report Type: 
  Country: None (occurrence: None)
  Receive Date: 20120417
  Receipt Date: 20110328
  Transmission Date: 20120825
  Serious: No
  Sender: FDA-Public Use
  Company Number: US-ASTRAZENECA-2011SE17568

PATIENT
  Sex: Female

DRUGS (3)
  1. NEXIUM [Suspect]
     Route: 048
  2. SEROQUEL [Suspect]
     Route: 048
  3. LISINOPRIL [Concomitant]
     Indication: HYPERTENSION

REACTIONS (4)
  - BLOOD PRESSURE INCREASED [None]
  - MALAISE [None]
  - EYE DISCHARGE [None]
  - EPISTAXIS [None]
